FAERS Safety Report 21714190 (Version 1)
Quarter: 2022Q4

REPORT INFORMATION
  Report Type: Spontaneous
  Country: US (occurrence: None)
  Receive Date: 20221209
  Receipt Date: 20221209
  Transmission Date: 20230112
  Serious: Yes (Hospitalization)
  Sender: FDA-Public Use
  Company Number: None

PATIENT
  Age: 63 Year
  Sex: Male

DRUGS (1)
  1. SOFOSBUVIR\VELPATASVIR [Suspect]
     Active Substance: SOFOSBUVIR\VELPATASVIR
     Indication: Chronic hepatitis C
     Dosage: OTHER QUANTITY : 400-100MG ;?FREQUENCY : DAILY;?
     Route: 048
     Dates: start: 20221108

REACTIONS (3)
  - Seizure [None]
  - Headache [None]
  - Dehydration [None]

NARRATIVE: CASE EVENT DATE: 20221124
